FAERS Safety Report 9768900 (Version 1)
Quarter: 2013Q4

REPORT INFORMATION
  Report Type: Spontaneous
  Country: US (occurrence: None)
  Receive Date: 20131213
  Receipt Date: 20131213
  Transmission Date: 20140711
  Serious: Yes (Hospitalization)
  Sender: FDA-Public Use
  Company Number: US-000801

PATIENT
  Sex: Female

DRUGS (2)
  1. GATTEX [Suspect]
     Indication: SHORT-BOWEL SYNDROME
     Dosage: 0.35 ML, QD, STREN/VOLUM: 0.35 ML / FREQU: ONCE DAILY SUBCUTANEOUS
     Route: 058
     Dates: start: 201307, end: 2013
  2. SOLUTIONS FOR PARENTERAL NUTRITION [Concomitant]

REACTIONS (2)
  - Fatigue [None]
  - Dehydration [None]
